FAERS Safety Report 13899042 (Version 2)
Quarter: 2018Q1

REPORT INFORMATION
  Report Type: Spontaneous
  Country: CA (occurrence: CA)
  Receive Date: 20170824
  Receipt Date: 20180319
  Transmission Date: 20180508
  Serious: Yes (Life-Threatening, Hospitalization, Other)
  Sender: FDA-Public Use
  Company Number: CA-FERRINGPH-2017FE04041

PATIENT

DRUGS (1)
  1. PICO-SALAX [Suspect]
     Active Substance: ANHYDROUS CITRIC ACID\MAGNESIUM OXIDE\SODIUM PICOSULFATE
     Indication: CONSTIPATION
     Dosage: 1 DF, DAILY (1 SACHET, 1 EVERY 1 DAY)
     Route: 048
     Dates: start: 20160212, end: 20160213

REACTIONS (6)
  - Weight decreased [Unknown]
  - Weight decreased [Unknown]
  - Diabetic ketoacidosis [Unknown]
  - Product use in unapproved indication [Unknown]
  - Type 1 diabetes mellitus [Unknown]
  - Off label use [Unknown]

NARRATIVE: CASE EVENT DATE: 201602
